FAERS Safety Report 16843643 (Version 1)
Quarter: 2019Q3

REPORT INFORMATION
  Report Type: Spontaneous
  Country: DE (occurrence: DE)
  Receive Date: 20190924
  Receipt Date: 20190924
  Transmission Date: 20191005
  Serious: Yes (Other)
  Sender: FDA-Public Use
  Company Number: DE-TORRENT-00015582

PATIENT
  Age: 40 Year
  Sex: Female

DRUGS (1)
  1. LEVETIRACETAM. [Suspect]
     Active Substance: LEVETIRACETAM
     Indication: PRODUCT USED FOR UNKNOWN INDICATION
     Dosage: 500 MG, 3X/DAY (TID)

REACTIONS (4)
  - Off label use [Unknown]
  - Maternal exposure during pregnancy [Unknown]
  - Thyroid disorder [Unknown]
  - Abortion spontaneous [Unknown]
